FAERS Safety Report 5397302-1 (Version None)
Quarter: 2007Q3

REPORT INFORMATION
  Report Type: 
  Country: None (occurrence: None)
  Receive Date: 20070723
  Receipt Date: 20070711
  Transmission Date: 20080115
  Serious: Yes (Life-Threatening, Hospitalization)
  Sender: FDA-Public Use
  Company Number: 2005P1000453

PATIENT
  Age: 64 Year
  Sex: Male
  Weight: 65 kg

DRUGS (12)
  1. RETEPLASE (RETEPLASE) [Suspect]
     Indication: ACUTE MYOCARDIAL INFARCTION
     Dosage: IV
     Route: 042
     Dates: start: 20040531, end: 20040531
  2. ABCIXIMAB (ABCIXIMAB) [Suspect]
     Indication: ACUTE MYOCARDIAL INFARCTION
     Dosage: IV
     Route: 042
     Dates: start: 20040531, end: 20040531
  3. WARFARIN SODIUM [Concomitant]
  4. AMIODARONE HCL [Concomitant]
  5. CHOLESTEROL - AND [Concomitant]
  6. TRIGLYCERIDE REDUCERS [Concomitant]
  7. FUROSEMIDE [Concomitant]
  8. PERINDOPRIL [Concomitant]
  9. ASPIRIN [Concomitant]
  10. DIGOXIN [Concomitant]
  11. TICLID [Concomitant]
  12. PROMAZINE HYDROCHLORIDE [Concomitant]

REACTIONS (15)
  - AKINESIA [None]
  - AORTIC VALVE INCOMPETENCE [None]
  - ATRIAL FIBRILLATION [None]
  - CARDIAC ARREST [None]
  - CARDIOMEGALY [None]
  - DILATATION ATRIAL [None]
  - DILATATION VENTRICULAR [None]
  - DISEASE RECURRENCE [None]
  - MITRAL VALVE INCOMPETENCE [None]
  - MITRAL VALVE PROLAPSE [None]
  - POSTERIOR CAPSULE RUPTURE [None]
  - PULMONARY ARTERIAL PRESSURE DECREASED [None]
  - TREATMENT FAILURE [None]
  - TRICUSPID VALVE INCOMPETENCE [None]
  - VENTRICULAR FIBRILLATION [None]
